FAERS Safety Report 6250726-2 (Version None)
Quarter: 2009Q2

REPORT INFORMATION
  Report Type: 
  Country: None (occurrence: None)
  Receive Date: 20090630
  Receipt Date: 20080808
  Transmission Date: 20091009
  Serious: No
  Sender: FDA-Public Use
  Company Number: US-ABBOTT-08P-163-0469037-00

PATIENT
  Sex: Male
  Weight: 96.702 kg

DRUGS (19)
  1. ZEMPLAR [Suspect]
     Indication: HYPERPARATHYROIDISM
     Route: 048
     Dates: start: 20071030
  2. CALCIUM D3 [Concomitant]
     Indication: DRUG USE FOR UNKNOWN INDICATION
     Dosage: 600MG/400U
     Route: 048
     Dates: start: 20071030
  3. METOPROLOL SUCCINATE [Concomitant]
     Indication: DRUG USE FOR UNKNOWN INDICATION
     Route: 048
  4. ATORVASTATIN CALCIUM [Concomitant]
     Indication: BLOOD CHOLESTEROL
     Route: 048
  5. FUROSEMIDE SODIUM [Concomitant]
     Indication: DIURETIC THERAPY
     Dosage: 2 X 20MG M,W, F; 1 X 20MG T, TH
     Route: 048
  6. GLIMETIRIDE [Concomitant]
     Indication: DIABETES MELLITUS
     Route: 048
  7. FEXOFENADINE [Concomitant]
     Indication: DRUG USE FOR UNKNOWN INDICATION
     Route: 048
  8. MEMANTINE HCL [Concomitant]
     Indication: AMNESIA
     Route: 048
  9. DUTASTERIDE [Concomitant]
     Indication: BLADDER DISORDER
     Route: 048
  10. DIOVAN HCT [Concomitant]
     Indication: DRUG USE FOR UNKNOWN INDICATION
     Route: 048
  11. DONEPEZIL HCL [Concomitant]
     Indication: AMNESIA
     Route: 048
  12. CLOPIDOGREL [Concomitant]
     Indication: PERIPHERAL VASCULAR DISORDER
     Route: 048
  13. MORNIFLUMATE [Concomitant]
     Indication: BLADDER DISORDER
     Route: 048
  14. TOCOPHEROL CONCENTRATE CAP [Concomitant]
     Indication: VITAMIN SUPPLEMENTATION
     Route: 048
  15. ASCORBIC ACID [Concomitant]
     Indication: VITAMIN SUPPLEMENTATION
     Route: 048
  16. FOLIC ACID [Concomitant]
     Indication: VITAMIN SUPPLEMENTATION
     Route: 048
  17. SODIUM BICARBONATE [Concomitant]
     Indication: RENAL DISORDER
     Route: 048
  18. ACETYLSALICYLIC ACID [Concomitant]
     Indication: DRUG USE FOR UNKNOWN INDICATION
     Route: 048
  19. IRON [Concomitant]
     Indication: ANAEMIA

REACTIONS (2)
  - LETHARGY [None]
  - RENAL FUNCTION TEST ABNORMAL [None]
